FAERS Safety Report 5339810-5 (Version None)
Quarter: 2007Q2

REPORT INFORMATION
  Report Type: 
  Country: None (occurrence: None)
  Receive Date: 20070524
  Receipt Date: 20070515
  Transmission Date: 20071010
  Serious: Yes (Hospitalization)
  Sender: FDA-Public Use
  Company Number: B0471650A

PATIENT
  Age: 52 Year
  Sex: Female

DRUGS (1)
  1. LITHIUM SALT (FORMULATION UNKNOWN) (LITHIUM SALT) (GENERIC) [Suspect]
     Indication: DEPRESSION

REACTIONS (15)
  - ANOREXIA [None]
  - BLOOD CREATININE INCREASED [None]
  - BLOOD UREA INCREASED [None]
  - CEREBELLAR ATROPHY [None]
  - CONFUSIONAL STATE [None]
  - COORDINATION ABNORMAL [None]
  - DISTURBANCE IN ATTENTION [None]
  - DYSARTHRIA [None]
  - GAIT SPASTIC [None]
  - HAEMODIALYSIS [None]
  - INSOMNIA [None]
  - MENINGEAL DISORDER [None]
  - MUSCULOSKELETAL STIFFNESS [None]
  - THERAPEUTIC AGENT TOXICITY [None]
  - TREMOR [None]
